FAERS Safety Report 14554142 (Version 1)
Quarter: 2018Q1

REPORT INFORMATION
  Report Type: Spontaneous
  Country: US (occurrence: US)
  Receive Date: 20180208
  Receipt Date: 20180208
  Transmission Date: 20180509
  Serious: No
  Sender: FDA-Public Use
  Company Number: None

PATIENT
  Age: 90 Year
  Sex: Male
  Weight: 84.8 kg

DRUGS (1)
  1. APIXABAN [Suspect]
     Active Substance: APIXABAN
     Indication: ATRIAL FIBRILLATION
     Route: 048
     Dates: start: 20150407, end: 20150423

REACTIONS (6)
  - Vomiting [None]
  - Urticaria [None]
  - Nausea [None]
  - Abdominal pain upper [None]
  - Pruritus [None]
  - Rash [None]

NARRATIVE: CASE EVENT DATE: 20150417
